FAERS Safety Report 7658462-2 (Version None)
Quarter: 2011Q3

REPORT INFORMATION
  Report Type: 
  Country: None (occurrence: None)
  Receive Date: 20110805
  Receipt Date: 20110801
  Transmission Date: 20111222
  Serious: No
  Sender: FDA-Public Use
  Company Number: US-TEVA-294929USA

PATIENT
  Sex: Female
  Weight: 45.4 kg

DRUGS (3)
  1. LEVONORGESTREL [Suspect]
     Indication: POST COITAL CONTRACEPTION
  2. LEVONORGESTREL [Suspect]
  3. PLAN B ONE-STEP [Suspect]
     Indication: POST COITAL CONTRACEPTION
     Dosage: 1.5 MILLIGRAM;
     Route: 048

REACTIONS (1)
  - MENSTRUATION DELAYED [None]
